FAERS Safety Report 10472217 (Version 1)
Quarter: 2014Q3

REPORT INFORMATION
  Report Type: Spontaneous
  Country: US (occurrence: None)
  Receive Date: 20140923
  Receipt Date: 20140923
  Transmission Date: 20150326
  Serious: Yes (Disabling, Other)
  Sender: FDA-Public Use
  Company Number: None

PATIENT
  Age: 32 Year
  Sex: Female
  Weight: 77.11 kg

DRUGS (1)
  1. IRON PILL [Suspect]
     Active Substance: IRON
     Indication: ANAEMIA
     Route: 048
     Dates: start: 2012, end: 2013

REACTIONS (10)
  - Choking [None]
  - Product quality issue [None]
  - Fatigue [None]
  - Somnolence [None]
  - Pruritus [None]
  - Renal impairment [None]
  - Palpitations [None]
  - Memory impairment [None]
  - Dyspnoea [None]
  - Formication [None]
